FAERS Safety Report 9550022 (Version 1)
Quarter: 2013Q3

REPORT INFORMATION
  Report Type: Spontaneous
  Country: RU (occurrence: RU)
  Receive Date: 20130924
  Receipt Date: 20130924
  Transmission Date: 20140515
  Serious: Yes (Other)
  Sender: FDA-Public Use
  Company Number: RU-VIIV HEALTHCARE LIMITED-B0924501A

PATIENT
  Sex: Male

DRUGS (3)
  1. COMBIVIR [Suspect]
     Indication: HIV INFECTION
     Route: 065
     Dates: start: 2011
  2. KALETRA [Suspect]
     Indication: HIV INFECTION
     Route: 065
     Dates: start: 2011
  3. AUGMENTIN [Suspect]
     Indication: PNEUMONIA
     Dosage: 1000MG THREE TIMES PER DAY
     Route: 065
     Dates: start: 20130809, end: 20130815

REACTIONS (5)
  - Pneumonia [Not Recovered/Not Resolved]
  - Face oedema [Unknown]
  - Pyrexia [Unknown]
  - Drug ineffective [Recovered/Resolved]
  - Chills [Unknown]
